FAERS Safety Report 9842666 (Version 3)
Quarter: 2014Q2

REPORT INFORMATION
  Report Type: Report from Study
  Country: AU (occurrence: AU)
  Receive Date: 20140124
  Receipt Date: 20140423
  Transmission Date: 20141212
  Serious: Yes (Hospitalization, Other)
  Sender: FDA-Public Use
  Company Number: PHHO2011AU10786

PATIENT
  Age: 70 Year
  Sex: Male
  Weight: 67 kg

DRUGS (10)
  1. AMN107 [Suspect]
     Indication: CHRONIC MYELOID LEUKAEMIA
     Dosage: 800 MG DAILY
     Route: 048
     Dates: start: 20090713, end: 20130618
  2. AMN107 [Suspect]
     Dosage: UNK
     Route: 048
     Dates: start: 20130623, end: 20131028
  3. AMN107 [Suspect]
     Dosage: 400 MG, QD
     Dates: start: 20131128
  4. AMLODIPINE [Concomitant]
     Dosage: 10 MG, UNK
  5. ATORVASTATIN [Concomitant]
     Dosage: 40 MG MANE
  6. IRBESARTAN [Concomitant]
     Dosage: 300 MG MANE
  7. IRBESARTAN [Concomitant]
     Dosage: 150 MG, QD
     Route: 048
  8. PANTOPRAZOLE [Concomitant]
     Dosage: 40 MG, UNK
     Route: 048
  9. CLOPIDOGREL [Concomitant]
     Dosage: 75 MG, QD
     Route: 048
  10. CADUET [Concomitant]
     Dosage: 10/40 MG DAILY

REACTIONS (3)
  - Electrocardiogram QT prolonged [Unknown]
  - Escherichia bacteraemia [Recovered/Resolved]
  - Vomiting [Recovered/Resolved]
